FAERS Safety Report 7879663-4 (Version None)
Quarter: 2011Q4

REPORT INFORMATION
  Report Type: 
  Country: None (occurrence: None)
  Receive Date: 20111101
  Receipt Date: 20111021
  Transmission Date: 20120403
  Serious: Yes (Other)
  Sender: FDA-Public Use
  Company Number: JP-GLAXOSMITHKLINE-B0755283A

PATIENT
  Age: 60 Year
  Sex: Female

DRUGS (2)
  1. XELODA [Concomitant]
     Route: 048
  2. TYKERB [Suspect]
     Route: 048

REACTIONS (1)
  - CARDIAC FAILURE [None]
